FAERS Safety Report 6835374-5 (Version None)
Quarter: 2010Q2

REPORT INFORMATION
  Report Type: 
  Country: None (occurrence: None)
  Receive Date: 20100520
  Receipt Date: 20090514
  Transmission Date: 20101027
  Serious: Yes (Other)
  Sender: FDA-Public Use
  Company Number: 2009214405

PATIENT
  Age: 76 Year
  Sex: Female
  Weight: 91 kg

DRUGS (6)
  1. PROVERA [Suspect]
     Indication: HORMONE REPLACEMENT THERAPY
     Dosage: ORAL
     Route: 048
     Dates: start: 19820101, end: 20010501
  2. PREMARIN [Suspect]
     Indication: HORMONE REPLACEMENT THERAPY
     Dosage: 0.3 MG
     Dates: start: 19820101, end: 20010501
  3. MEDROXYPROGESTERONE ACETATE [Suspect]
     Indication: HORMONE REPLACEMENT THERAPY
     Dosage: 2.5 MG
     Dates: start: 19970401, end: 20010501
  4. ASPIRIN [Concomitant]
  5. MOBIC [Concomitant]
  6. TOBRADEX [Concomitant]

REACTIONS (1)
  - BREAST CANCER [None]
